FAERS Safety Report 8950921 (Version 1)
Quarter: 2012Q4

REPORT INFORMATION
  Report Type: 
  Country: US (occurrence: US)
  Receive Date: 20121207
  Receipt Date: 20121207
  Transmission Date: 20130627
  Serious: No
  Sender: FDA-Public Use
  Company Number: US-BAYER-2012-128729

PATIENT
  Age: 88 Year
  Sex: Female
  Weight: 79.37 kg

DRUGS (3)
  1. ALEVE CAPLET/TABLET,MIDOL EXTENDED RELIEF CAPLET [Suspect]
     Indication: BACK ACHE
     Dosage: 3 DF, ONCE
     Route: 048
     Dates: start: 20121203, end: 20121203
  2. BAYER ASPIRIN REGIMEN ADULT LOW STRENGTH [Concomitant]
     Indication: MYOCARDIAL INFARCT PROPHYLAXIS
  3. BLOOD PRESSURE MEDICATION (NOS) [Concomitant]
     Dosage: 3 DF, UNK

REACTIONS (1)
  - Dyspepsia [Recovered/Resolved]
